FAERS Safety Report 7820839-X (Version None)
Quarter: 2011Q4

REPORT INFORMATION
  Report Type: 
  Country: None (occurrence: None)
  Receive Date: 20111018
  Receipt Date: 20111010
  Transmission Date: 20120403
  Serious: Yes (Hospitalization, Other)
  Sender: FDA-Public Use
  Company Number: US-ABBOTT-11P-163-0863942-00

PATIENT
  Age: 25 Year
  Sex: Male

DRUGS (5)
  1. FLOVENT [Concomitant]
     Indication: ASTHMA
  2. HUMIRA [Suspect]
     Dates: start: 20110922, end: 20110922
  3. HUMIRA [Suspect]
     Dosage: INTERRUPTED
     Dates: start: 20111006, end: 20111006
  4. HUMIRA [Suspect]
     Indication: CROHN'S DISEASE
     Dates: start: 20110908, end: 20110908
  5. CELEXA [Concomitant]
     Indication: BIPOLAR DISORDER

REACTIONS (2)
  - INTESTINAL STENOSIS [None]
  - ABDOMINAL PAIN [None]
